FAERS Safety Report 8208119-4 (Version None)
Quarter: 2012Q1

REPORT INFORMATION
  Report Type: 
  Country: None (occurrence: None)
  Receive Date: 20120314
  Receipt Date: 20120307
  Transmission Date: 20120608
  Serious: Yes (Other)
  Sender: FDA-Public Use
  Company Number: PHHY2012BR006923

PATIENT
  Sex: Male

DRUGS (1)
  1. FORMOTEROL FUMARATE [Suspect]
     Indication: BRONCHITIS

REACTIONS (4)
  - BRONCHITIS [None]
  - DYSPNOEA [None]
  - TACHYCARDIA [None]
  - DRUG DEPENDENCE [None]
